FAERS Safety Report 8596331 (Version 3)
Quarter: 2012Q4

REPORT INFORMATION
  Report Type: 
  Country: BR (occurrence: BR)
  Receive Date: 20120605
  Receipt Date: 20120913
  Transmission Date: 20130627
  Serious: Yes (Death, Hospitalization, Other)
  Sender: FDA-Public Use
  Company Number: PHHY2012BR046432

PATIENT
  Age: 59 Year
  Sex: Female

DRUGS (3)
  1. FORASEQ [Suspect]
     Indication: ASTHMA
     Dosage: 1 DF, BID
     Dates: start: 2011
  2. HYDROCHLOROTHIAZIDE [Concomitant]
     Indication: HYPERTENSION
     Dosage: 25 mg, QD
     Route: 048
     Dates: start: 2001
  3. CAPTOPRIL [Concomitant]
     Indication: HYPERTENSION
     Dosage: 25 mg, QID
     Route: 048
     Dates: start: 2005

REACTIONS (5)
  - Death [Fatal]
  - Abdominal pain upper [Unknown]
  - Vertigo [Unknown]
  - Arrhythmia [Unknown]
  - Blood cholesterol increased [Recovered/Resolved]
